FAERS Safety Report 7264449-4 (Version None)
Quarter: 2011Q1

REPORT INFORMATION
  Report Type: 
  Country: None (occurrence: None)
  Receive Date: 20110131
  Receipt Date: 20110117
  Transmission Date: 20110831
  Serious: Yes (Hospitalization)
  Sender: FDA-Public Use
  Company Number: AT-JNJFOC-20101203387

PATIENT
  Sex: Female

DRUGS (5)
  1. SIMPONI [Suspect]
     Indication: RHEUMATOID ARTHRITIS
     Route: 058
  2. AMLODIPINE [Concomitant]
     Indication: HYPERTENSION
  3. ISOPTIN SR [Concomitant]
     Indication: HYPERTENSION
  4. DOXAZOSIN [Concomitant]
     Indication: HYPERTENSION
  5. THYREX [Concomitant]
     Indication: HYPERTHYROIDISM

REACTIONS (1)
  - PNEUMONIA [None]
